FAERS Safety Report 7059699 (Version 3)
Quarter: 2013Q1

REPORT INFORMATION
  Report Type: Spontaneous
  Country: DE (occurrence: DE)
  Receive Date: 20080630
  Receipt Date: 20130124
  Transmission Date: 20140127
  Serious: Yes (Life-Threatening, Hospitalization, Other)
  Sender: FDA-Public Use
  Company Number: DE-JNJFOC-20080606661

PATIENT
  Age: 51 Year
  Sex: Female

DRUGS (5)
  1. IBUPROFEN [Suspect]
     Indication: PRODUCT USED FOR UNKNOWN INDICATION
  2. IFN-B [Suspect]
     Indication: RELAPSING-REMITTING MULTIPLE SCLEROSIS
     Route: 065
     Dates: start: 200606
  3. SIMVASTATIN [Suspect]
     Indication: LIPIDS INCREASED
  4. SERTRALINE [Suspect]
     Indication: ANTIDEPRESSANT THERAPY
  5. LORAZEPAM [Suspect]
     Indication: ANTIDEPRESSANT THERAPY

REACTIONS (4)
  - Autoimmune hepatitis [Recovered/Resolved]
  - Acute hepatic failure [Recovered/Resolved]
  - Hepatic encephalopathy [Unknown]
  - Coma hepatic [Unknown]
